FAERS Safety Report 10053341 (Version 1)
Quarter: 2014Q2

REPORT INFORMATION
  Report Type: Spontaneous
  Country: US (occurrence: US)
  Receive Date: 20140402
  Receipt Date: 20140402
  Transmission Date: 20141212
  Serious: No
  Sender: FDA-Public Use
  Company Number: US-MALLINCKRODT-T201400051

PATIENT
  Age: 46 Year
  Sex: Male

DRUGS (4)
  1. OPTIRAY [Suspect]
     Indication: ANGIOGRAM
     Dosage: 125 ML, SINGLE, 3 CC/SEC, WARMED
     Route: 042
     Dates: start: 20140109, end: 20140109
  2. PRILOSEC [Concomitant]
  3. AMBIEN [Concomitant]
  4. LIPITOR [Concomitant]

REACTIONS (3)
  - Hypoaesthesia [Unknown]
  - Hypoaesthesia oral [Unknown]
  - Pharyngeal hypoaesthesia [Unknown]
